FAERS Safety Report 9498856 (Version 1)
Quarter: 2013Q3

REPORT INFORMATION
  Report Type: Spontaneous
  Country: US (occurrence: None)
  Receive Date: 20130830
  Receipt Date: 20130830
  Transmission Date: 20140515
  Serious: Yes (Hospitalization)
  Sender: FDA-Public Use
  Company Number: HYP201308-000046

PATIENT
  Age: 23 Month
  Sex: Female

DRUGS (6)
  1. RAVICTI (GLYCEROL PHENYLBUTYRATE) ORAL LIQUID [Suspect]
     Indication: AMINO ACID METABOLISM DISORDER
     Route: 048
     Dates: start: 20130503, end: 20130730
  2. RAVICTI (GLYCEROL PHENYLBUTYRATE) ORAL LIQUID [Suspect]
     Indication: AMINO ACID METABOLISM DISORDER
     Route: 048
     Dates: start: 20130730, end: 20130813
  3. UCD ANAMIX [Concomitant]
  4. PEDIASURE WITH FIBER [Concomitant]
  5. DUOCAL [Concomitant]
  6. LACTULOSE [Concomitant]

REACTIONS (6)
  - Viral infection [None]
  - Cough [None]
  - Vomiting [None]
  - Pyrexia [None]
  - Metabolic acidosis [None]
  - Mental status changes [None]
